FAERS Safety Report 5384085-4 (Version None)
Quarter: 2007Q3

REPORT INFORMATION
  Report Type: 
  Country: None (occurrence: None)
  Receive Date: 20070711
  Receipt Date: 20070705
  Transmission Date: 20080115
  Serious: Yes (Death)
  Sender: FDA-Public Use
  Company Number: AU-AVENTIS-200716065GDDC

PATIENT
  Age: 46 Year
  Sex: Male
  Weight: 112.4 kg

DRUGS (4)
  1. LANTUS [Suspect]
     Route: 058
     Dates: start: 20061120
  2. METFORMIN HCL [Concomitant]
     Dosage: DOSE: UNK
  3. DIAMICRON MR [Concomitant]
     Dosage: DOSE: UNK
  4. LIPITOR [Concomitant]

REACTIONS (1)
  - ROAD TRAFFIC ACCIDENT [None]
